FAERS Safety Report 23566890 (Version 1)
Quarter: 2024Q1

REPORT INFORMATION
  Report Type: Spontaneous
  Country: US (occurrence: US)
  Receive Date: 20240226
  Receipt Date: 20240226
  Transmission Date: 20240410
  Serious: No
  Sender: FDA-Public Use
  Company Number: US-AMNEAL PHARMACEUTICALS-2023-AMRX-02520

PATIENT
  Age: 79 Year
  Sex: Male

DRUGS (4)
  1. RYTARY [Suspect]
     Active Substance: CARBIDOPA\LEVODOPA
     Indication: Product used for unknown indication
     Dosage: 2 CAPSULES EVERY MORNING, 1 CAPSULE IN MID-DAY, AND 2 CAPSULES BY MOUTH EVERY EVENING
     Route: 048
  2. RYTARY [Suspect]
     Active Substance: CARBIDOPA\LEVODOPA
     Dosage: 23.75-95 MG 02 CAPSULES IN THE MORNING AND AT BEDTIME AND 01 CAPSULE IN THE AFTERNOON (TOTAL 05 CAPS
     Route: 048
     Dates: start: 20231020
  3. RYTARY [Suspect]
     Active Substance: CARBIDOPA\LEVODOPA
     Dosage: 36.25/145 MG, 02 CAPSULES, 3X/DAY
     Route: 048
     Dates: start: 20240126
  4. RYTARY [Suspect]
     Active Substance: CARBIDOPA\LEVODOPA
     Dosage: 03 CAPSULES, 3X/DAY, 02 CAPSULES IN THE MORNING AND 01 CAPSULE AT NOON 3:30 AND 06PM
     Route: 048
     Dates: start: 20240209

REACTIONS (2)
  - Insomnia [Unknown]
  - Drug ineffective [Unknown]

NARRATIVE: CASE EVENT DATE: 20230622
